FAERS Safety Report 19682137 (Version 1)
Quarter: 2021Q3

REPORT INFORMATION
  Report Type: Report from Study
  Country: GB (occurrence: GB)
  Receive Date: 20210810
  Receipt Date: 20210810
  Transmission Date: 20211014
  Serious: Yes (Other)
  Sender: FDA-Public Use
  Company Number: GB-IGSA-BIG0015596

PATIENT

DRUGS (2)
  1. HUMAN NORMAL IMMUNOGLOBULIN (IV) [Suspect]
     Active Substance: HUMAN IMMUNOGLOBULIN G
     Indication: RESPIRATORY SYNCYTIAL VIRUS INFECTION
     Dosage: FOUR VIALS OF UNKNOWN SIZE OR VOLUME
     Route: 042
     Dates: start: 2015
  2. HUMAN NORMAL IMMUNOGLOBULIN (IV) [Suspect]
     Active Substance: HUMAN IMMUNOGLOBULIN G
     Indication: SECONDARY IMMUNODEFICIENCY

REACTIONS (2)
  - Loss of consciousness [Unknown]
  - Feeling abnormal [Unknown]
